FAERS Safety Report 21934327 (Version 2)
Quarter: 2024Q2

REPORT INFORMATION
  Report Type: Report from Study
  Country: UY (occurrence: UY)
  Receive Date: 20230201
  Receipt Date: 20240619
  Transmission Date: 20240716
  Serious: Yes (Hospitalization, Other)
  Sender: FDA-Public Use
  Company Number: UY-ABBVIE-4290508

PATIENT
  Age: 75 Year
  Sex: Female

DRUGS (1)
  1. HUMIRA [Suspect]
     Active Substance: ADALIMUMAB
     Indication: Rheumatoid arthritis
     Dosage: FORM STRENGTH: 40 MG
     Route: 058
     Dates: start: 20190815

REACTIONS (11)
  - Full blood count decreased [Recovering/Resolving]
  - Constipation [Unknown]
  - Blood pressure decreased [Recovering/Resolving]
  - Gait inability [Not Recovered/Not Resolved]
  - Anaemia [Recovering/Resolving]
  - Joint dislocation [Not Recovered/Not Resolved]
  - Cerebral microinfarction [Unknown]
  - Amnesia [Unknown]
  - Panic attack [Unknown]
  - Gastrointestinal pain [Recovering/Resolving]
  - Cognitive disorder [Unknown]

NARRATIVE: CASE EVENT DATE: 20220901
